FAERS Safety Report 7602477-7 (Version None)
Quarter: 2011Q3

REPORT INFORMATION
  Report Type: 
  Country: None (occurrence: None)
  Receive Date: 20110712
  Receipt Date: 20110701
  Transmission Date: 20111222
  Serious: No
  Sender: FDA-Public Use
  Company Number: US-BIOGENIDEC-2011BI024402

PATIENT
  Sex: Female

DRUGS (2)
  1. NAPROXEN (ALEVE) [Concomitant]
     Indication: INFLUENZA LIKE ILLNESS
  2. AVONEX [Suspect]
     Indication: MULTIPLE SCLEROSIS
     Route: 030
     Dates: start: 20090306

REACTIONS (3)
  - ULCER [None]
  - INFLUENZA LIKE ILLNESS [None]
  - PAIN [None]
